FAERS Safety Report 8409896-X (Version None)
Quarter: 2012Q2

REPORT INFORMATION
  Report Type: 
  Country: None (occurrence: None)
  Receive Date: 20120605
  Receipt Date: 20120524
  Transmission Date: 20120825
  Serious: Yes (Hospitalization)
  Sender: FDA-Public Use
  Company Number: SE-JNJFOC-20120520100

PATIENT
  Age: 78 Year
  Sex: Male

DRUGS (9)
  1. SALAZOPYRIN [Concomitant]
     Route: 065
     Dates: start: 20050907, end: 20061127
  2. SALAZOPYRIN [Concomitant]
     Route: 065
     Dates: start: 20080422, end: 20090326
  3. NSAID [Concomitant]
     Route: 065
     Dates: start: 20090922
  4. PREDNISOLONE [Concomitant]
     Route: 065
     Dates: start: 20040929
  5. METHOTREXATE [Concomitant]
     Route: 065
     Dates: start: 20040929
  6. NSAID [Concomitant]
     Route: 065
     Dates: start: 20040929, end: 20050323
  7. NSAID [Concomitant]
     Route: 065
     Dates: start: 20050907, end: 20060214
  8. REMICADE [Suspect]
     Indication: RHEUMATOID ARTHRITIS
     Route: 042
     Dates: start: 20051110
  9. NSAID [Concomitant]
     Route: 065
     Dates: start: 20060411, end: 20090326

REACTIONS (3)
  - RENAL FAILURE [None]
  - DERMATITIS INFECTED [None]
  - URINARY TRACT INFECTION [None]
